FAERS Safety Report 8151954-1 (Version None)
Quarter: 2012Q1

REPORT INFORMATION
  Report Type: 
  Country: None (occurrence: None)
  Receive Date: 20120221
  Receipt Date: 20120217
  Transmission Date: 20120608
  Serious: No
  Sender: FDA-Public Use
  Company Number: US-PFIZER INC-2012043654

PATIENT
  Sex: Male
  Weight: 55.329 kg

DRUGS (11)
  1. CHANTIX [Suspect]
     Dosage: UNK
     Route: 048
     Dates: start: 20120201
  2. SEROQUEL [Concomitant]
     Indication: DEPRESSION
     Dosage: UNK
  3. CHANTIX [Suspect]
     Indication: SMOKING CESSATION THERAPY
     Dosage: 0.5 MG, 1X/DAY
     Route: 048
     Dates: start: 20120210, end: 20120201
  4. SEROQUEL [Concomitant]
     Indication: SLEEP DISORDER
  5. CYMBALTA [Concomitant]
     Indication: NEUROPATHY PERIPHERAL
     Dosage: UNK
  6. PREDNISONE [Concomitant]
     Indication: GASTROINTESTINAL DISORDER
     Dosage: UNK
  7. ISENTRESS [Concomitant]
     Indication: HIV TEST POSITIVE
     Dosage: UNK
  8. SELZENTRY [Concomitant]
     Indication: HIV TEST POSITIVE
     Dosage: UNK
  9. GABAPENTIN [Concomitant]
     Indication: NEUROPATHY PERIPHERAL
     Dosage: UNK
  10. INTELENCE [Concomitant]
     Indication: HIV TEST POSITIVE
     Dosage: UNK
  11. PROTONIX [Concomitant]
     Dosage: UNK

REACTIONS (5)
  - PAIN [None]
  - FATIGUE [None]
  - LIMB DISCOMFORT [None]
  - MYALGIA [None]
  - BACK PAIN [None]
